FAERS Safety Report 23115066 (Version 1)
Quarter: 2023Q4

REPORT INFORMATION
  Report Type: Spontaneous
  Country: US (occurrence: None)
  Receive Date: 20231024
  Receipt Date: 20231024
  Transmission Date: 20240110
  Serious: Yes (Hospitalization)
  Sender: FDA-Public Use
  Company Number: None

PATIENT
  Sex: Female

DRUGS (52)
  1. CREON [Suspect]
     Active Substance: PANCRELIPASE AMYLASE\PANCRELIPASE LIPASE\PANCRELIPASE PROTEASE
     Indication: Cystic fibrosis
     Dosage: OTHER QUANTITY : 24000-76000UNIT;?
     Route: 048
     Dates: start: 20230915
  2. ACETYLCYST SOL [Concomitant]
  3. ACID REDUCER TAB [Concomitant]
  4. ADVAIR DISKUS [Concomitant]
     Active Substance: FLUTICASONE PROPIONATE\SALMETEROL XINAFOATE
  5. ALTERA HANDSET [Concomitant]
  6. APAP/CODEINE 300-30MG [Concomitant]
  7. AZITHROMYCIN TAB [Concomitant]
  8. BENTYL CAP [Concomitant]
  9. BENTYL INJ [Concomitant]
  10. BENZONATATE CAP [Concomitant]
  11. BETHKIS 300MG/4ML AMP 224=1BOX [Concomitant]
  12. CALCIUM [Concomitant]
     Active Substance: CALCIUM
  13. CALCIUM [Concomitant]
     Active Substance: CALCIUM
  14. CALCIUM CIT 315 + VIT D 250 TAB [Concomitant]
  15. CARAFATE TAB [Concomitant]
  16. CAYSTON 75 MG INHAL SOLUTION [Concomitant]
  17. CLARITIN CAP [Concomitant]
  18. CRESEMBA CAP [Concomitant]
  19. CYCLOBENZAPR TAB [Concomitant]
  20. ELIQUIS [Concomitant]
     Active Substance: APIXABAN
  21. FAMOTIDINE TAB [Concomitant]
  22. FLONASE ALGY SPR [Concomitant]
  23. GUAIFENESIN TAB [Concomitant]
  24. GUANFACINE TAB [Concomitant]
  25. LEVALBUTEROL [Concomitant]
     Active Substance: LEVALBUTEROL
  26. LEVALBUATEROL NEB [Concomitant]
  27. LEVAQUIN TAB [Concomitant]
  28. LORATADINE TAB [Concomitant]
  29. MELATONIN TAB [Concomitant]
  30. METAXALONE TAB [Concomitant]
  31. MUCINEX TAB [Concomitant]
  32. OXYCOD/APAP TAB 7.5-325 [Concomitant]
  33. PANCREAZE CAP 2600UNIT [Concomitant]
  34. PANCREAZE 21., UNIT CAP DR [Concomitant]
  35. PANTOPRAZOLE TAB [Concomitant]
  36. PANTOPRAZOLE TAB [Concomitant]
  37. PARI LC PLUS NEB SET [Concomitant]
  38. PERCOCET TAB 2.5-325 [Concomitant]
  39. PREDNISONE TAB 10MG [Concomitant]
  40. PROCHLORPER TAB 10MG [Concomitant]
  41. PROMETHAZINE TAB 50MG [Concomitant]
  42. QUETIPINE TAB 25MG [Concomitant]
  43. SALINE SOL [Concomitant]
  44. SEROQUEL TAB 100MG [Concomitant]
  45. SERTRALINE HYDROCHLORIDE [Concomitant]
     Active Substance: SERTRALINE HYDROCHLORIDE
  46. SERTRALINE HYDROCHLORIDE [Concomitant]
     Active Substance: SERTRALINE HYDROCHLORIDE
  47. SODIUM CHLOR NEB [Concomitant]
  48. TOPAMAX TAB [Concomitant]
  49. TRAMADOL HCL TAB [Concomitant]
  50. TRAZODONE TAB [Concomitant]
  51. TRIKAFTA PAK 75MG [Concomitant]
  52. TRIKAFTA TAB [Concomitant]

REACTIONS (1)
  - Pneumonia [None]
